FAERS Safety Report 10225346 (Version 1)
Quarter: 2014Q2

REPORT INFORMATION
  Report Type: Spontaneous
  Country: US (occurrence: US)
  Receive Date: 20140609
  Receipt Date: 20140609
  Transmission Date: 20141212
  Serious: No
  Sender: FDA-Public Use
  Company Number: US-ASTELLAS-2014US001717

PATIENT
  Age: 42 Year
  Sex: Male

DRUGS (1)
  1. ASTAGRAF XL [Suspect]
     Indication: ORGAN TRANSPLANT
     Route: 048
     Dates: start: 20140114

REACTIONS (1)
  - Inappropriate schedule of drug administration [Unknown]
